FAERS Safety Report 24345388 (Version 1)
Quarter: 2024Q3

REPORT INFORMATION
  Report Type: Spontaneous
  Country: US (occurrence: US)
  Receive Date: 20240920
  Receipt Date: 20240920
  Transmission Date: 20241017
  Serious: Yes (Other)
  Sender: BAYER
  Company Number: US-BAYER-2024A131552

PATIENT
  Age: 76 Year
  Sex: Female

DRUGS (1)
  1. ALKA-SELTZER PLUS COLD DAY AND NIGHT POWERMAX GELS [Suspect]
     Active Substance: ACETAMINOPHEN\DEXTROMETHORPHAN HYDROBROMIDE\DOXYLAMINE SUCCINATE\PHENYLEPHRINE HYDROCHLORIDE
     Indication: Sinus congestion
     Dosage: 1 FOR DAY TIME 1 FOR NIGHT TIME FOR 2 DAYS
     Route: 048
     Dates: start: 20240909, end: 20240909

REACTIONS (3)
  - Choking [Recovered/Resolved]
  - Drug ineffective [None]
  - Panic reaction [Not Recovered/Not Resolved]

NARRATIVE: CASE EVENT DATE: 20240901
